FAERS Safety Report 7883649-3 (Version None)
Quarter: 2011Q4

REPORT INFORMATION
  Report Type: 
  Country: None (occurrence: None)
  Receive Date: 20111102
  Receipt Date: 20111025
  Transmission Date: 20120403
  Serious: Yes (Other)
  Sender: FDA-Public Use
  Company Number: US-BAYER-2011-104379

PATIENT
  Age: 58 Year
  Sex: Female
  Weight: 73 kg

DRUGS (1)
  1. NAPROXEN (ALEVE) [Suspect]
     Indication: ANALGESIC THERAPY
     Dosage: 220 MG, QD
     Route: 048
     Dates: start: 20110801, end: 20111001

REACTIONS (3)
  - ABDOMINAL DISTENSION [None]
  - RECTAL HAEMORRHAGE [None]
  - FLATULENCE [None]
